FAERS Safety Report 17754123 (Version 3)
Quarter: 2020Q3

REPORT INFORMATION
  Report Type: Spontaneous
  Country: PL (occurrence: PL)
  Receive Date: 20200507
  Receipt Date: 20200901
  Transmission Date: 20201102
  Serious: Yes (Other)
  Sender: FDA-Public Use
  Company Number: PL-REGENERON PHARMACEUTICALS, INC.-2020-35629

PATIENT

DRUGS (2)
  1. EYLEA [Suspect]
     Active Substance: AFLIBERCEPT
     Indication: RETINOPATHY PROLIFERATIVE
     Dosage: UNK. TOTAL DOSE OF EYLEA PRIOR TO EVENT IS UNK. DATE OF LAST INJECTION PRIOR TO THE EVENT IS UNK.
     Route: 031
     Dates: start: 2017
  2. EYLEA [Suspect]
     Active Substance: AFLIBERCEPT
     Indication: DIABETIC RETINAL OEDEMA

REACTIONS (2)
  - Renal injury [Unknown]
  - Blood pressure increased [Unknown]

NARRATIVE: CASE EVENT DATE: 202003
